FAERS Safety Report 10427265 (Version 1)
Quarter: 2014Q3

REPORT INFORMATION
  Report Type: Spontaneous
  Country: US (occurrence: None)
  Receive Date: 20140902
  Receipt Date: 20140902
  Transmission Date: 20150326
  Serious: No
  Sender: FDA-Public Use
  Company Number: None

PATIENT
  Age: 58 Year
  Sex: Male
  Weight: 88.45 kg

DRUGS (1)
  1. AMPHETAMINE SALTS [Suspect]
     Active Substance: AMPHETAMINE ASPARTATE\AMPHETAMINE SULFATE\DEXTROAMPHETAMINE SACCHARATE\DEXTROAMPHETAMINE SULFATE
     Indication: ATTENTION DEFICIT/HYPERACTIVITY DISORDER
     Dosage: 1/2 PILL 2X A DAY ONCE DAILY TAKEN BY MOUTH
     Route: 048
     Dates: start: 20140801, end: 20140901

REACTIONS (8)
  - Product formulation issue [None]
  - Dizziness [None]
  - Suspected counterfeit product [None]
  - Rhinorrhoea [None]
  - Drug ineffective [None]
  - No reaction on previous exposure to drug [None]
  - Headache [None]
  - Somnolence [None]

NARRATIVE: CASE EVENT DATE: 20140801
